FAERS Safety Report 7332568-X (Version None)
Quarter: 2011Q1

REPORT INFORMATION
  Report Type: 
  Country: None (occurrence: None)
  Receive Date: 20110304
  Receipt Date: 20110222
  Transmission Date: 20110831
  Serious: Yes (Hospitalization)
  Sender: FDA-Public Use
  Company Number: PHHY2010US45818

PATIENT
  Sex: Male
  Weight: 104 kg

DRUGS (9)
  1. PREDNISONE [Concomitant]
  2. VITAMIN B6 [Concomitant]
  3. EXJADE [Suspect]
     Dosage: 2000 MG, BID
     Route: 048
  4. LEVAQUIN [Concomitant]
  5. EXJADE [Suspect]
     Indication: MYELODYSPLASTIC SYNDROME
     Dosage: 1000 MG, BID
     Route: 048
     Dates: start: 20100623
  6. NEXIUM [Concomitant]
  7. ACYCLOVIR [Concomitant]
  8. ZYRTEC [Concomitant]
  9. DAPSONE [Concomitant]

REACTIONS (2)
  - IMMUNE SYSTEM DISORDER [None]
  - SEPSIS [None]
